FAERS Safety Report 24980528 (Version 2)
Quarter: 2025Q2

REPORT INFORMATION
  Report Type: Report from Study
  Country: CA (occurrence: CA)
  Receive Date: 20250218
  Receipt Date: 20250421
  Transmission Date: 20250717
  Serious: Yes (Death)
  Sender: MYLAN
  Company Number: CA-MYLANLABS-2025M1012259

PATIENT
  Age: 76 Year
  Sex: Female
  Weight: 69 kg

DRUGS (11)
  1. CLOZAPINE [Suspect]
     Active Substance: CLOZAPINE
     Indication: Delusional disorder, unspecified type
     Dosage: 50 MILLIGRAM, PM (DAILY AT BEDTIME BY MOUTH) (START DATE: ON OR ABOUT 6-APR-2021)
     Dates: start: 202104
  2. FUROSEMIDE [Concomitant]
     Active Substance: FUROSEMIDE
  3. APIXABAN [Concomitant]
     Active Substance: APIXABAN
  4. CRESTOR [Concomitant]
     Active Substance: ROSUVASTATIN CALCIUM
  5. NITROGLYCERIN [Concomitant]
     Active Substance: NITROGLYCERIN
  6. SENNOSIDES [Concomitant]
     Active Substance: SENNOSIDES
  7. FERROUS FUMARATE [Concomitant]
     Active Substance: FERROUS FUMARATE
  8. DULOXETINE [Concomitant]
     Active Substance: DULOXETINE
  9. CLOZAPINE [Concomitant]
     Active Substance: CLOZAPINE
  10. VENTOLIN [Concomitant]
     Active Substance: ALBUTEROL SULFATE
  11. SYNJARDY [Concomitant]
     Active Substance: EMPAGLIFLOZIN\METFORMIN HYDROCHLORIDE

REACTIONS (2)
  - Cardiac failure congestive [Fatal]
  - Off label use [Unknown]

NARRATIVE: CASE EVENT DATE: 20210401
